FAERS Safety Report 6260517-4 (Version None)
Quarter: 2009Q3

REPORT INFORMATION
  Report Type: 
  Country: None (occurrence: None)
  Receive Date: 20090708
  Receipt Date: 20081007
  Transmission Date: 20100115
  Serious: No
  Sender: FDA-Public Use
  Company Number: US-BRISTOL-MYERS SQUIBB COMPANY-14361091

PATIENT
  Sex: Male

DRUGS (1)
  1. SINEMET CR [Suspect]

REACTIONS (4)
  - DRUG INEFFECTIVE [None]
  - FALL [None]
  - FREEZING PHENOMENON [None]
  - TREMOR [None]
